FAERS Safety Report 10676914 (Version 1)
Quarter: 2014Q4

REPORT INFORMATION
  Report Type: Spontaneous
  Country: FR (occurrence: FR)
  Receive Date: 20141226
  Receipt Date: 20141226
  Transmission Date: 20150529
  Serious: Yes (Hospitalization)
  Sender: FDA-Public Use
  Company Number: FR-PFIZER INC-2014353520

PATIENT
  Age: 19 Year
  Sex: Male

DRUGS (3)
  1. SOLU-MEDROL [Suspect]
     Active Substance: METHYLPREDNISOLONE SODIUM SUCCINATE
     Dosage: 2 DF, 1X/DAY
     Route: 042
     Dates: start: 20140901, end: 20140902
  2. VITAMIN K [Suspect]
     Active Substance: PHYTONADIONE
     Dosage: 10 MG, 1X/DAY
     Route: 040
     Dates: start: 20140831, end: 20140903
  3. FER ACTAVIS [Suspect]
     Active Substance: IRON SUCROSE
     Dosage: 1 DF PER 24 HOURS EVERY TWO DAYS DURING 5 DAYS
     Route: 042
     Dates: start: 20140828, end: 20140901

REACTIONS (5)
  - Venous thrombosis limb [Recovered/Resolved]
  - Thrombophlebitis [None]
  - Injection site induration [None]
  - Injection site erythema [None]
  - Injection site pain [None]

NARRATIVE: CASE EVENT DATE: 20140907
